FAERS Safety Report 11822977 (Version 2)
Quarter: 2016Q1

REPORT INFORMATION
  Report Type: Spontaneous
  Country: BR (occurrence: BR)
  Receive Date: 20151210
  Receipt Date: 20160118
  Transmission Date: 20160525
  Serious: Yes (Other)
  Sender: FDA-Public Use
  Company Number: BR-JNJFOC-20151206967

PATIENT
  Age: 60 Year
  Sex: Female

DRUGS (1)
  1. SIMPONI [Suspect]
     Active Substance: GOLIMUMAB
     Indication: RHEUMATOID ARTHRITIS
     Route: 058
     Dates: start: 2014, end: 20151127

REACTIONS (6)
  - Chest pain [Not Recovered/Not Resolved]
  - Arthropod bite [Unknown]
  - Herpes virus infection [Not Recovered/Not Resolved]
  - Pruritus [Unknown]
  - Dizziness [Not Recovered/Not Resolved]
  - Allergy to arthropod bite [Recovered/Resolved]

NARRATIVE: CASE EVENT DATE: 201508
